FAERS Safety Report 21979100 (Version 1)
Quarter: 2023Q1

REPORT INFORMATION
  Report Type: Spontaneous
  Country: US (occurrence: None)
  Receive Date: 20230209
  Receipt Date: 20230209
  Transmission Date: 20230418
  Serious: Yes (Death)
  Sender: FDA-Public Use
  Company Number: None

PATIENT
  Age: 88 Year
  Sex: Female

DRUGS (1)
  1. RIVAROXABAN [Suspect]
     Active Substance: RIVAROXABAN

REACTIONS (3)
  - Haemorrhagic stroke [None]
  - Intraventricular haemorrhage [None]
  - Blood pressure increased [None]

NARRATIVE: CASE EVENT DATE: 20221202
